FAERS Safety Report 8492780 (Version 3)
Quarter: 2013Q2

REPORT INFORMATION
  Report Type: Spontaneous
  Country: BR (occurrence: BR)
  Receive Date: 20120404
  Receipt Date: 20130508
  Transmission Date: 20140414
  Serious: Yes (Other)
  Sender: FDA-Public Use
  Company Number: BR-AMGEN-BRASP2012019752

PATIENT
  Age: 44 Year
  Sex: Female
  Weight: 87 kg

DRUGS (10)
  1. ENBREL [Suspect]
     Indication: RHEUMATOID ARTHRITIS
     Dosage: 50 MG, QWK
     Dates: start: 201201
  2. ENBREL [Suspect]
     Dosage: 25 MG, 2X/WEEK
     Route: 058
     Dates: start: 201202
  3. GLUCOSAMINE SULFATE [Concomitant]
     Indication: RHEUMATOID ARTHRITIS
     Dosage: UNK
     Dates: start: 201201
  4. GLUCOSAMINE SULFATE [Concomitant]
     Indication: OSTEOARTHRITIS
  5. PARACETAMOL [Concomitant]
     Indication: RHEUMATOID ARTHRITIS
     Dosage: UNK
     Dates: start: 201201
  6. PARACETAMOL [Concomitant]
     Indication: OSTEOARTHRITIS
  7. NIMESULIDE [Concomitant]
     Indication: RHEUMATOID ARTHRITIS
     Dosage: UNK (STRENGTH 100 MG )
     Dates: start: 201201
  8. NIMESULIDE [Concomitant]
     Indication: OSTEOARTHRITIS
  9. CYCLOBENZAPRINE [Concomitant]
     Indication: RHEUMATOID ARTHRITIS
     Dosage: UNK
     Dates: start: 201201
  10. CYCLOBENZAPRINE [Concomitant]
     Indication: OSTEOARTHRITIS

REACTIONS (3)
  - Wrong technique in drug usage process [Unknown]
  - Rheumatoid arthritis [Unknown]
  - Influenza [Not Recovered/Not Resolved]
